FAERS Safety Report 19264060 (Version 1)
Quarter: 2021Q2

REPORT INFORMATION
  Report Type: Spontaneous
  Country: US (occurrence: US)
  Receive Date: 20210515
  Receipt Date: 20210515
  Transmission Date: 20210717
  Serious: Yes (Hospitalization)
  Sender: FDA-Public Use
  Company Number: None

PATIENT
  Age: 36 Year
  Sex: Female
  Weight: 95.4 kg

DRUGS (3)
  1. PROGESTERONE. [Concomitant]
     Active Substance: PROGESTERONE
  2. PRENATAL SUPPLEMENT [Concomitant]
  3. ESTRADIOL. [Suspect]
     Active Substance: ESTRADIOL
     Indication: INFERTILITY
     Dosage: ?          QUANTITY:1 TABLET(S);?
     Route: 048
     Dates: start: 20210201, end: 20210508

REACTIONS (10)
  - Exposure during pregnancy [None]
  - Panic attack [None]
  - Decreased appetite [None]
  - Hyperhidrosis [None]
  - Tinnitus [None]
  - Loss of libido [None]
  - Diarrhoea [None]
  - Product use complaint [None]
  - Dizziness [None]
  - Hypertension [None]

NARRATIVE: CASE EVENT DATE: 20210201
